FAERS Safety Report 19909990 (Version 14)
Quarter: 2022Q4

REPORT INFORMATION
  Report Type: Report from Study
  Country: CO (occurrence: CO)
  Receive Date: 20211003
  Receipt Date: 20221013
  Transmission Date: 20230113
  Serious: Yes (Other)
  Sender: FDA-Public Use
  Company Number: NVSC2021CO222493

PATIENT
  Sex: Female
  Weight: 63 kg

DRUGS (9)
  1. KISQALI [Suspect]
     Active Substance: RIBOCICLIB
     Indication: Hormone receptor negative HER2 positive breast cancer
     Dosage: 600 MG, QD
     Route: 048
     Dates: start: 20210714
  2. KISQALI [Suspect]
     Active Substance: RIBOCICLIB
     Dosage: 600 MG, QD
     Route: 030
     Dates: start: 202109, end: 202109
  3. KISQALI [Suspect]
     Active Substance: RIBOCICLIB
     Dosage: 400 MG, QD
     Route: 030
     Dates: start: 202109, end: 202109
  4. KISQALI [Suspect]
     Active Substance: RIBOCICLIB
     Dosage: 600 MG, QD
     Route: 048
  5. KISQALI [Suspect]
     Active Substance: RIBOCICLIB
     Dosage: UNK
     Route: 048
  6. FEMARA [Suspect]
     Active Substance: LETROZOLE
     Indication: Breast cancer
     Dosage: 2.5 MG, QD
     Route: 048
  7. FEMARA [Suspect]
     Active Substance: LETROZOLE
     Dosage: 2.5 MG, QD
     Route: 048
     Dates: start: 202109
  8. ENOXAPARIN [Concomitant]
     Active Substance: ENOXAPARIN
     Indication: Prophylaxis
     Dosage: 1 YEARS AGO (DOES NOT REMEMBER EXACT DATE)
     Route: 058
  9. LETROZOLE [Concomitant]
     Active Substance: LETROZOLE
     Indication: Product used for unknown indication
     Dosage: UNK
     Route: 065

REACTIONS (10)
  - Haemoglobin decreased [Unknown]
  - Asthenia [Unknown]
  - Platelet count decreased [Unknown]
  - Decreased immune responsiveness [Unknown]
  - Nausea [Unknown]
  - Vomiting [Unknown]
  - Salivary hypersecretion [Unknown]
  - Neck pain [Unknown]
  - Product substitution issue [Unknown]
  - Product use issue [Unknown]
